FAERS Safety Report 22938916 (Version 2)
Quarter: 2023Q4

REPORT INFORMATION
  Report Type: Report from Study
  Country: RU (occurrence: RU)
  Receive Date: 20230913
  Receipt Date: 20231013
  Transmission Date: 20240110
  Serious: Yes (Other)
  Sender: FDA-Public Use
  Company Number: RU-002147023-NVSC2023RU185083

PATIENT
  Age: 31 Year
  Sex: Female

DRUGS (1)
  1. INCLISIRAN [Suspect]
     Active Substance: INCLISIRAN
     Indication: Dyslipidaemia
     Dosage: (SUBSEQUENT DOSE AFTER 3 MONTHS) (UNDER THE SKIN OF THE ABDOMEN)
     Route: 058
     Dates: start: 20230801

REACTIONS (1)
  - Low density lipoprotein increased [Unknown]

NARRATIVE: CASE EVENT DATE: 20230821
